FAERS Safety Report 13673414 (Version 1)
Quarter: 2017Q2

REPORT INFORMATION
  Report Type: Spontaneous
  Country: FR (occurrence: FR)
  Receive Date: 20170621
  Receipt Date: 20170621
  Transmission Date: 20170830
  Serious: Yes (Other)
  Sender: FDA-Public Use
  Company Number: FR-009507513-1706FRA007644

PATIENT
  Age: 48 Year
  Sex: Male

DRUGS (6)
  1. TEMODAL [Suspect]
     Active Substance: TEMOZOLOMIDE
     Indication: GLIOBLASTOMA
     Dosage: 120 MG, QD
     Route: 048
     Dates: start: 20170425, end: 20170529
  2. BACTRIM [Suspect]
     Active Substance: SULFAMETHOXAZOLE\TRIMETHOPRIM
     Indication: INFECTION PROPHYLAXIS
     Dosage: 1 DF, TIW
     Route: 048
     Dates: start: 20170425, end: 20170529
  3. TEMODAL [Suspect]
     Active Substance: TEMOZOLOMIDE
     Dosage: UNK
     Route: 048
     Dates: start: 20170601
  4. SETOFILM [Suspect]
     Active Substance: ONDANSETRON
     Dosage: UNK
     Route: 048
     Dates: start: 20170601
  5. SETOFILM [Suspect]
     Active Substance: ONDANSETRON
     Indication: DRUG TOXICITY PROPHYLAXIS
     Dosage: 1 DF, QD
     Route: 048
     Dates: start: 20170425, end: 20170529
  6. BACTRIM [Suspect]
     Active Substance: SULFAMETHOXAZOLE\TRIMETHOPRIM
     Dosage: UNK
     Route: 048
     Dates: start: 20170601

REACTIONS (2)
  - Rash [Recovered/Resolved]
  - Burning sensation [Recovered/Resolved]

NARRATIVE: CASE EVENT DATE: 20170526
